FAERS Safety Report 7068016-7 (Version None)
Quarter: 2010Q4

REPORT INFORMATION
  Report Type: 
  Country: None (occurrence: None)
  Receive Date: 20101027
  Receipt Date: 20101027
  Transmission Date: 20110411
  Serious: No
  Sender: FDA-Public Use
  Company Number: None

PATIENT
  Sex: Male
  Weight: 12.7914 kg

DRUGS (1)
  1. HYLAND'S TEETHING TABLETS 125 TABLETS HYLAND'S [Suspect]
     Indication: TEETHING
     Dosage: 2-3 TABLETS 4X/DAY PO
     Route: 048
     Dates: start: 20100808, end: 20101024

REACTIONS (2)
  - ABNORMAL BEHAVIOUR [None]
  - SOMNOLENCE [None]
